FAERS Safety Report 8554687-2 (Version None)
Quarter: 2012Q3

REPORT INFORMATION
  Report Type: 
  Country: None (occurrence: None)
  Receive Date: 20120731
  Receipt Date: 20120727
  Transmission Date: 20120928
  Serious: Yes (Other)
  Sender: FDA-Public Use
  Company Number: PHHY2012CA065343

PATIENT
  Sex: Female

DRUGS (5)
  1. CAPECITABINE [Suspect]
  2. DOCETAXEL [Suspect]
  3. LETROZOLE [Suspect]
     Route: 048
  4. EXEMESTANE [Suspect]
  5. PACLITAXEL [Suspect]

REACTIONS (2)
  - CONCOMITANT DISEASE PROGRESSION [None]
  - BREAST CANCER [None]
